FAERS Safety Report 4930328-8 (Version None)
Quarter: 2006Q1

REPORT INFORMATION
  Report Type: 
  Country: None (occurrence: None)
  Receive Date: 20060302
  Receipt Date: 20060223
  Transmission Date: 20060701
  Serious: Yes (Other)
  Sender: FDA-Public Use
  Company Number: US-JNJFOC-20060205939

PATIENT
  Sex: Male

DRUGS (9)
  1. EXTRA STRENGTH TYLENOL [Suspect]
     Route: 048
  2. EXTRA STRENGTH TYLENOL [Suspect]
     Indication: FIBROMYALGIA
     Route: 048
  3. INDERAL [Concomitant]
     Indication: MITRAL VALVE PROLAPSE
     Dosage: STARTED 15 YEARS AGO
  4. VASOTEC RPD [Concomitant]
     Dosage: STARTED 15 YEARS AGO
  5. LASIX [Concomitant]
  6. K-TAB [Concomitant]
  7. ALBUTEROL [Concomitant]
     Indication: LUNG DISORDER
  8. FLOVENT [Concomitant]
     Indication: LUNG DISORDER
     Dosage: ^10 MCG^ BID
  9. ZITHROMAX [Concomitant]
     Indication: TOOTH ABSCESS
     Dosage: STOPPED 17-FEB-2006 OR 18-FEB-2006

REACTIONS (2)
  - BLOOD PRESSURE INCREASED [None]
  - TACHYCARDIA [None]
